FAERS Safety Report 6609117-4 (Version None)
Quarter: 2010Q1

REPORT INFORMATION
  Report Type: 
  Country: None (occurrence: None)
  Receive Date: 20100301
  Receipt Date: 20100219
  Transmission Date: 20100710
  Serious: Yes (Hospitalization, Disabling, Other)
  Sender: FDA-Public Use
  Company Number: US-MERCK-0901USA03855

PATIENT
  Age: 52 Year
  Sex: Female

DRUGS (2)
  1. FOSAMAX [Suspect]
     Indication: RHEUMATOID ARTHRITIS
     Route: 048
     Dates: start: 20030101, end: 20070201
  2. FOSAMAX [Suspect]
     Route: 048
     Dates: start: 20020101

REACTIONS (48)
  - ABSCESS [None]
  - ACTINOMYCOSIS [None]
  - ANXIETY [None]
  - ARTHROPATHY [None]
  - BONE DISORDER [None]
  - BRUXISM [None]
  - BURNING SENSATION [None]
  - CYSTITIS [None]
  - DENTAL CARIES [None]
  - DEPRESSION [None]
  - EDENTULOUS [None]
  - EMOTIONAL DISORDER [None]
  - EXOSTOSIS [None]
  - FISTULA [None]
  - FUNGAL INFECTION [None]
  - GALLBLADDER OPERATION [None]
  - GINGIVAL BLEEDING [None]
  - GINGIVAL DISORDER [None]
  - GINGIVAL INFECTION [None]
  - GINGIVAL SWELLING [None]
  - HERPES VIRUS INFECTION [None]
  - HIP SURGERY [None]
  - HYPOAESTHESIA [None]
  - IMPAIRED HEALING [None]
  - INFECTION [None]
  - JOINT RANGE OF MOTION DECREASED [None]
  - KIDNEY INFECTION [None]
  - LOOSE TOOTH [None]
  - NEOPLASM MALIGNANT [None]
  - NEPHROLITHIASIS [None]
  - ORAL TORUS [None]
  - OSTEOMYELITIS [None]
  - OSTEONECROSIS [None]
  - OSTEORADIONECROSIS [None]
  - PAIN [None]
  - PARAESTHESIA [None]
  - PERIODONTAL DISEASE [None]
  - SENSATION OF HEAVINESS [None]
  - STAPHYLOCOCCAL INFECTION [None]
  - SURGERY [None]
  - SWELLING [None]
  - TEMPOROMANDIBULAR JOINT SYNDROME [None]
  - THROMBOSIS [None]
  - THYROID OPERATION [None]
  - TOOTH DISORDER [None]
  - TOOTH FRACTURE [None]
  - TOOTH LOSS [None]
  - TRISMUS [None]
